FAERS Safety Report 19402272 (Version 1)
Quarter: 2021Q2

REPORT INFORMATION
  Report Type: Spontaneous
  Country: US (occurrence: US)
  Receive Date: 20210610
  Receipt Date: 20210610
  Transmission Date: 20210717
  Serious: No
  Sender: FDA-Public Use
  Company Number: US-COLLEGIUM PHARMACEUTICAL, INC.-2020CGM00396

PATIENT
  Sex: Male
  Weight: 74.83 kg

DRUGS (4)
  1. XTAMPZA ER [Suspect]
     Active Substance: OXYCODONE
     Indication: PAIN
     Dosage: 9 MG, 1X/DAY
     Route: 048
     Dates: start: 202005, end: 202007
  2. XTAMPZA ER [Suspect]
     Active Substance: OXYCODONE
     Indication: ILL-DEFINED DISORDER
     Dosage: 13.5 MG, 2X/DAY
     Route: 048
     Dates: start: 202010
  3. XTAMPZA ER [Suspect]
     Active Substance: OXYCODONE
     Indication: ILL-DEFINED DISORDER
  4. XTAMPZA ER [Suspect]
     Active Substance: OXYCODONE
     Indication: PAIN
     Dosage: 13.5 MG, 1X/DAY
     Route: 048
     Dates: start: 202007, end: 202010

REACTIONS (3)
  - Off label use [Recovered/Resolved]
  - Drug ineffective [Not Recovered/Not Resolved]
  - Product quality issue [Unknown]

NARRATIVE: CASE EVENT DATE: 2020
